FAERS Safety Report 22158096 (Version 1)
Quarter: 2023Q1

REPORT INFORMATION
  Report Type: Report from Study
  Country: BR (occurrence: BR)
  Receive Date: 20230330
  Receipt Date: 20230330
  Transmission Date: 20230418
  Serious: Yes (Hospitalization, Other)
  Sender: FDA-Public Use
  Company Number: BR-AstraZeneca-2023A067508

PATIENT
  Age: 0 Year
  Sex: Female

DRUGS (8)
  1. SYNAGIS [Suspect]
     Active Substance: PALIVIZUMAB
     Indication: Antiviral prophylaxis
     Dosage: UNKNOWN UNKNOWN
     Route: 030
     Dates: start: 20220729
  2. SYNAGIS [Suspect]
     Active Substance: PALIVIZUMAB
     Indication: Antiviral prophylaxis
     Dosage: 15.0MG/KG UNKNOWN
     Route: 030
     Dates: start: 20220527
  3. SYNAGIS [Suspect]
     Active Substance: PALIVIZUMAB
     Indication: Antiviral prophylaxis
     Dosage: UNKNOWN UNKNOWN
     Route: 030
     Dates: start: 20220621
  4. SYNAGIS [Suspect]
     Active Substance: PALIVIZUMAB
     Indication: Antiviral prophylaxis
     Dosage: UNKNOWN UNKNOWN
     Route: 030
     Dates: start: 20230215
  5. SYNAGIS [Suspect]
     Active Substance: PALIVIZUMAB
     Indication: Antiviral prophylaxis
     Dosage: UNKNOWN UNKNOWN
     Route: 030
     Dates: start: 20230315
  6. ZINC [Concomitant]
     Active Substance: ZINC
     Indication: Immune disorder prophylaxis
  7. IRON POLYMALTOSE [Concomitant]
     Active Substance: IRON POLYMALTOSE
     Indication: Anaemia prophylaxis
     Dosage: SIX DROPS
  8. PURAVIT A/D/E [Concomitant]
     Indication: Prophylaxis
     Dosage: TWO DROPS

REACTIONS (6)
  - Bronchiolitis [Recovering/Resolving]
  - Dehydration [Recovering/Resolving]
  - Underweight [Unknown]
  - Nasopharyngitis [Unknown]
  - Bronchial dysplasia [Unknown]
  - Nasal obstruction [Unknown]

NARRATIVE: CASE EVENT DATE: 20230130
